FAERS Safety Report 23317033 (Version 1)
Quarter: 2023Q4

REPORT INFORMATION
  Report Type: Spontaneous
  Country: US (occurrence: None)
  Receive Date: 20231219
  Receipt Date: 20231219
  Transmission Date: 20240110
  Serious: No
  Sender: FDA-Public Use
  Company Number: US-ROCHE-3351096

PATIENT
  Age: 20 Year

DRUGS (1)
  1. HEMLIBRA [Suspect]
     Active Substance: EMICIZUMAB-KXWH
     Indication: Factor VIII deficiency
     Route: 065

REACTIONS (6)
  - Arthralgia [Unknown]
  - Haemarthrosis [Unknown]
  - Contusion [Unknown]
  - Muscle haemorrhage [Unknown]
  - Epistaxis [Recovering/Resolving]
  - Haemorrhage [Unknown]
